FAERS Safety Report 4648754-3 (Version None)
Quarter: 2005Q2

REPORT INFORMATION
  Report Type: 
  Country: None (occurrence: None)
  Receive Date: 20050429
  Receipt Date: 20050317
  Transmission Date: 20051028
  Serious: Yes (Hospitalization)
  Sender: FDA-Public Use
  Company Number: US-MERCK-0503USA03031

PATIENT
  Age: 68 Year
  Sex: Male
  Weight: 122 kg

DRUGS (22)
  1. ZOCOR [Suspect]
     Indication: DYSLIPIDAEMIA
     Route: 048
     Dates: start: 20031209, end: 20050317
  2. ZOCOR [Suspect]
     Route: 048
     Dates: start: 20050321
  3. ASPIRIN [Concomitant]
     Route: 065
  4. CARBIDOPA AND LEVODOPA [Concomitant]
     Route: 065
  5. PLAVIX [Concomitant]
     Route: 065
  6. PEPCID [Concomitant]
     Route: 048
  7. LASIX [Concomitant]
     Route: 048
  8. NEURONTIN [Concomitant]
     Route: 048
  9. ISOSORBIDE MONONITRATE [Concomitant]
     Route: 065
  10. LORATADINE [Concomitant]
     Indication: HYPERSENSITIVITY
     Route: 048
  11. LORATADINE [Concomitant]
     Route: 048
  12. METOPROLOL [Concomitant]
     Indication: HYPERTENSION
     Route: 048
  13. METOPROLOL [Concomitant]
     Indication: CARDIAC FAILURE CONGESTIVE
     Route: 048
  14. COZAAR [Concomitant]
     Indication: HYPERTENSION
     Route: 048
  15. COZAAR [Concomitant]
     Indication: PROPHYLAXIS
     Route: 048
  16. OMEPRAZOLE [Concomitant]
     Route: 065
  17. [THERAPY UNSPECIFIED] [Concomitant]
     Route: 065
  18. DARBEPOETIN ALFA [Concomitant]
     Route: 065
  19. NITROGLYCERIN [Concomitant]
     Route: 060
  20. INSULIN [Concomitant]
     Route: 065
  21. SERTRALINE HYDROCHLORIDE [Concomitant]
     Route: 065
  22. FELODIPINE [Concomitant]
     Indication: HYPERTENSION
     Route: 048

REACTIONS (9)
  - ABDOMINAL DISCOMFORT [None]
  - CARDIAC FAILURE CONGESTIVE [None]
  - MUSCLE SPASMS [None]
  - MYALGIA [None]
  - NAUSEA [None]
  - PULMONARY OEDEMA [None]
  - RENAL FAILURE CHRONIC [None]
  - UPPER RESPIRATORY TRACT INFECTION [None]
  - VOMITING [None]
